FAERS Safety Report 11473186 (Version 1)
Quarter: 2015Q3

REPORT INFORMATION
  Report Type: Spontaneous
  Country: US (occurrence: None)
  Receive Date: 20150828
  Receipt Date: 20150828
  Transmission Date: 20151125
  Serious: Yes (Other)
  Sender: FDA-Public Use
  Company Number: AMAG201400430

PATIENT
  Age: 66 Year
  Sex: Male

DRUGS (1)
  1. FERAHEME [Suspect]
     Active Substance: FERUMOXYTOL NON-STOICHIOMETRIC MAGNETITE
     Route: 042
     Dates: start: 20141105, end: 20141105

REACTIONS (3)
  - Chest pain [None]
  - Gastrooesophageal reflux disease [None]
  - Blood pressure decreased [None]

NARRATIVE: CASE EVENT DATE: 20141105
